FAERS Safety Report 16217451 (Version 1)
Quarter: 2019Q2

REPORT INFORMATION
  Report Type: Spontaneous
  Country: US (occurrence: US)
  Receive Date: 20190315
  Receipt Date: 20190315
  Transmission Date: 20190711
  Serious: Yes (Hospitalization)
  Sender: FDA-Public Use
  Company Number: None

PATIENT
  Age: 46 Year
  Sex: Female
  Weight: 90.3 kg

DRUGS (11)
  1. TRASTUZUMAB. [Suspect]
     Active Substance: TRASTUZUMAB
     Dosage: ?          OTHER DOSE:8MG/KG ON C1D1;?
     Dates: start: 20180817, end: 20181207
  2. PERTUZUMAB. [Suspect]
     Active Substance: PERTUZUMAB
     Dosage: ?          OTHER FREQUENCY:CYCLE 1 ;?
     Dates: start: 20180817, end: 20181207
  3. MORPHINE [Concomitant]
     Active Substance: MORPHINE
  4. CARBOPLATIN. [Suspect]
     Active Substance: CARBOPLATIN
     Dosage: ?          OTHER FREQUENCY:Q3 WKS, DAY 1 OF E;?
     Route: 042
     Dates: start: 20180817, end: 20181207
  5. PERTUZUMAB. [Suspect]
     Active Substance: PERTUZUMAB
     Dosage: ?          OTHER FREQUENCY:CONSECUTIVE CYCLES;?
     Dates: start: 20180817, end: 20181207
  6. OXYCODONE [Concomitant]
     Active Substance: OXYCODONE
  7. TRASTUZUMAB. [Suspect]
     Active Substance: TRASTUZUMAB
     Dosage: ?          OTHER DOSE:6MG/KG CONSECUTIVE;?
     Dates: start: 20180817, end: 20181207
  8. TYLENOL [Concomitant]
     Active Substance: ACETAMINOPHEN
  9. VANCOMYCIN [Concomitant]
     Active Substance: VANCOMYCIN
  10. PACLITAXEL. [Suspect]
     Active Substance: PACLITAXEL
     Dosage: ?          OTHER DOSE:80MG/M2;OTHER FREQUENCY:DAYS 1,8 AND 15;?
     Route: 042
     Dates: start: 20180817, end: 20181207
  11. CEPHALEXIN. [Concomitant]
     Active Substance: CEPHALEXIN

REACTIONS (3)
  - Breast pain [None]
  - Post procedural complication [None]
  - Mastitis [None]

NARRATIVE: CASE EVENT DATE: 20190309
